FAERS Safety Report 5316692-9 (Version None)
Quarter: 2007Q2

REPORT INFORMATION
  Report Type: 
  Country: None (occurrence: None)
  Receive Date: 20070501
  Receipt Date: 20070501
  Transmission Date: 20071010
  Serious: Yes (Other)
  Sender: FDA-Public Use
  Company Number: None

PATIENT
  Sex: Female
  Weight: 121.1104 kg

DRUGS (1)
  1. LEVAQUIN [Suspect]
     Indication: ABDOMINAL PAIN
     Dosage: 750MG DAILY ORAL
     Route: 048

REACTIONS (6)
  - ANOREXIA [None]
  - EMOTIONAL DISORDER [None]
  - HAIR COLOUR CHANGES [None]
  - HYPOAESTHESIA [None]
  - PARAESTHESIA [None]
  - SENSATION OF HEAVINESS [None]
